FAERS Safety Report 16564408 (Version 1)
Quarter: 2019Q3

REPORT INFORMATION
  Report Type: Report from Study
  Country: US (occurrence: US)
  Receive Date: 20190712
  Receipt Date: 20190712
  Transmission Date: 20191004
  Serious: No
  Sender: FDA-Public Use
  Company Number: US-BEH-2019104091

PATIENT
  Age: 63 Year
  Sex: Female

DRUGS (6)
  1. ALCOHOL PAD [Concomitant]
     Active Substance: ISOPROPYL ALCOHOL
     Indication: PROPHYLAXIS
  2. BERINERT [Suspect]
     Active Substance: HUMAN C1-ESTERASE INHIBITOR
     Route: 065
  3. BERINERT [Concomitant]
     Active Substance: HUMAN C1-ESTERASE INHIBITOR
     Indication: PROPHYLAXIS
  4. BERINERT [Suspect]
     Active Substance: HUMAN C1-ESTERASE INHIBITOR
     Route: 065
  5. ALCOHOL PAD [Concomitant]
     Active Substance: ISOPROPYL ALCOHOL
     Indication: PREOPERATIVE CARE
     Dosage: UNK, PRN
     Route: 065
  6. BERINERT [Concomitant]
     Active Substance: HUMAN C1-ESTERASE INHIBITOR
     Indication: PREOPERATIVE CARE
     Dosage: UNK, PRN
     Route: 065

REACTIONS (1)
  - Musculoskeletal pain [Unknown]
